FAERS Safety Report 9103423 (Version 2)
Quarter: 2013Q2

REPORT INFORMATION
  Report Type: Spontaneous
  Country: JP (occurrence: JP)
  Receive Date: 20130218
  Receipt Date: 20130429
  Transmission Date: 20140414
  Serious: Yes (Other)
  Sender: FDA-Public Use
  Company Number: JP-ASTRAZENECA-2013SE10578

PATIENT
  Age: 71 Year
  Sex: Male
  Weight: 56 kg

DRUGS (3)
  1. CASODEX [Suspect]
     Indication: PROSTATE CANCER
     Route: 048
     Dates: start: 20120305, end: 20120829
  2. MUCOSTA [Suspect]
     Indication: GASTRIC ULCER
     Route: 048
     Dates: start: 20120305, end: 20120829
  3. HARNAL [Concomitant]
     Indication: BENIGN PROSTATIC HYPERPLASIA
     Route: 048
     Dates: start: 2011

REACTIONS (1)
  - Drug-induced liver injury [Recovered/Resolved]
